FAERS Safety Report 5827099-X (Version None)
Quarter: 2008Q3

REPORT INFORMATION
  Report Type: 
  Country: None (occurrence: None)
  Receive Date: 20080724
  Receipt Date: 20080709
  Transmission Date: 20090109
  Serious: Yes (Death, Other)
  Sender: FDA-Public Use
  Company Number: 2008-02331

PATIENT
  Age: 64 Year
  Sex: Male
  Weight: 61 kg

DRUGS (1)
  1. VELCADE [Suspect]
     Indication: MULTIPLE MYELOMA
     Dosage: 2 MG, INTRAVENOUS
     Route: 042
     Dates: start: 20071029, end: 20071224

REACTIONS (21)
  - AORTIC ARTERIOSCLEROSIS [None]
  - ARTERIOSCLEROSIS CORONARY ARTERY [None]
  - ATELECTASIS [None]
  - BRONCHOPNEUMONIA [None]
  - COLITIS ISCHAEMIC [None]
  - CONDITION AGGRAVATED [None]
  - CYTOMEGALOVIRUS ANTIGEN POSITIVE [None]
  - EPSTEIN-BARR VIRUS ANTIGEN POSITIVE [None]
  - EXTRAMEDULLARY HAEMOPOIESIS [None]
  - FAT NECROSIS [None]
  - FLUID RETENTION [None]
  - GALLBLADDER CHOLESTEROLOSIS [None]
  - HAEMOSIDEROSIS [None]
  - HYPOPHAGIA [None]
  - IMMUNOSUPPRESSION [None]
  - JC VIRUS INFECTION [None]
  - OLIGODENDROGLIOMA [None]
  - PLEURISY [None]
  - PROGRESSIVE MULTIFOCAL LEUKOENCEPHALOPATHY [None]
  - PYREXIA [None]
  - VIRAL DNA TEST POSITIVE [None]
